FAERS Safety Report 14826289 (Version 1)
Quarter: 2018Q2

REPORT INFORMATION
  Report Type: Spontaneous
  Country: US (occurrence: US)
  Receive Date: 20180404
  Receipt Date: 20180404
  Transmission Date: 20180711
  Serious: Yes (Life-Threatening)
  Sender: FDA-Public Use
  Company Number: None

PATIENT
  Age: 39 Year
  Sex: Male
  Weight: 75.87 kg

DRUGS (1)
  1. BUPRENORPHONE/NALOXONE [Suspect]
     Active Substance: BUPRENORPHINE\NALOXONE
     Indication: DRUG DEPENDENCE
     Route: 060
     Dates: start: 20180301, end: 20180328

REACTIONS (2)
  - Chest pain [None]
  - Dyspnoea [None]

NARRATIVE: CASE EVENT DATE: 20180323
